FAERS Safety Report 7785261-3 (Version None)
Quarter: 2011Q3

REPORT INFORMATION
  Report Type: 
  Country: None (occurrence: None)
  Receive Date: 20110929
  Receipt Date: 20110927
  Transmission Date: 20111222
  Serious: Yes (Hospitalization)
  Sender: FDA-Public Use
  Company Number: PHHY2011NL85803

PATIENT
  Sex: Male

DRUGS (4)
  1. ZOMETA [Suspect]
     Dosage: 4 MG/5ML 1X PER 21 DAYS
     Dates: start: 20110901
  2. ZOMETA [Suspect]
     Dosage: 4 MG/5ML 1X PER 21 DAYS
     Dates: start: 20110927
  3. ZOMETA [Suspect]
     Dosage: 4 MG/5ML 1X PER 21 DAYS
     Dates: start: 20101018
  4. BLOOD TRANSFUSION, AUXILIARY PRODUCTS [Concomitant]

REACTIONS (3)
  - DEHYDRATION [None]
  - ANAEMIA [None]
  - CONSTIPATION [None]
